FAERS Safety Report 14423555 (Version 3)
Quarter: 2018Q4

REPORT INFORMATION
  Report Type: Spontaneous
  Country: US (occurrence: US)
  Receive Date: 20180123
  Receipt Date: 20181005
  Transmission Date: 20190204
  Serious: No
  Sender: FDA-Public Use
  Company Number: US-PFIZER INC-2018027270

PATIENT
  Age: 14 Year
  Sex: Male
  Weight: 43.84 kg

DRUGS (3)
  1. GENOTROPIN [Suspect]
     Active Substance: SOMATROPIN
     Indication: GROWTH HORMONE DEFICIENCY
     Dosage: 2 MG, DAILY
     Dates: start: 20150918
  2. GENOTROPIN [Suspect]
     Active Substance: SOMATROPIN
     Dosage: 2 MG, UNK
     Dates: start: 201710
  3. GENOTROPIN [Suspect]
     Active Substance: SOMATROPIN
     Dosage: 2 MG, UNK
     Dates: start: 201710

REACTIONS (4)
  - Product dose omission [Unknown]
  - Arthralgia [Unknown]
  - Device dispensing error [Unknown]
  - Device use issue [Unknown]

NARRATIVE: CASE EVENT DATE: 201805
